FAERS Safety Report 4611378-8 (Version None)
Quarter: 2005Q2

REPORT INFORMATION
  Report Type: 
  Country: None (occurrence: None)
  Receive Date: 20050311
  Receipt Date: 20050121
  Transmission Date: 20051028
  Serious: No
  Sender: FDA-Public Use
  Company Number: 2005-BP-01155BP

PATIENT
  Age: 76 Year
  Sex: Male

DRUGS (7)
  1. SPIRIVA [Suspect]
     Indication: BRONCHITIS CHRONIC
     Dosage: 18 MCG (18 MCG, 1 IN 1 D), IH
     Route: 055
     Dates: start: 20041018
  2. SPIRIVA [Suspect]
  3. LIPITOR [Concomitant]
  4. AMITRIPTYLINE HCL [Concomitant]
  5. VITAMINS [Concomitant]
  6. ACETYLSALICYLIC ACID SRT [Concomitant]
  7. ALTACE [Concomitant]

REACTIONS (1)
  - AGEUSIA [None]
